FAERS Safety Report 17054012 (Version 1)
Quarter: 2019Q4

REPORT INFORMATION
  Report Type: Spontaneous
  Country: US (occurrence: US)
  Receive Date: 20191120
  Receipt Date: 20191120
  Transmission Date: 20200122
  Serious: Yes (Other)
  Sender: FDA-Public Use
  Company Number: None

PATIENT
  Age: 83 Year
  Sex: Female
  Weight: 119.7 kg

DRUGS (17)
  1. IBRANCE [Suspect]
     Active Substance: PALBOCICLIB
     Indication: BONE CANCER
     Dosage: ?          OTHER FREQUENCY:1CX21D, 7 DAYS OFF;?
     Route: 048
     Dates: start: 20170217
  2. LASIX [Concomitant]
     Active Substance: FUROSEMIDE
  3. PREDNISOLONE. [Concomitant]
     Active Substance: PREDNISOLONE
  4. TYLENOL [Concomitant]
     Active Substance: ACETAMINOPHEN
  5. IBRANCE [Suspect]
     Active Substance: PALBOCICLIB
     Indication: BREAST CANCER
     Dosage: ?          OTHER FREQUENCY:1CX21D, 7 DAYS OFF;?
     Route: 048
     Dates: start: 20170217
  6. IBRANCE [Concomitant]
     Active Substance: PALBOCICLIB
  7. XGEVA [Concomitant]
     Active Substance: DENOSUMAB
  8. SIMVASTATIN. [Concomitant]
     Active Substance: SIMVASTATIN
  9. ALEVE [Concomitant]
     Active Substance: NAPROXEN SODIUM
  10. COLACE [Concomitant]
     Active Substance: DOCUSATE SODIUM
  11. DORZOLAMIDE-TIMOLOL [Concomitant]
     Active Substance: DORZOLAMIDE\TIMOLOL
  12. BACITRACIN. [Concomitant]
     Active Substance: BACITRACIN
  13. FASLODEX [Concomitant]
     Active Substance: FULVESTRANT
  14. LATANOPROST. [Concomitant]
     Active Substance: LATANOPROST
  15. PERCOCET [Concomitant]
     Active Substance: ACETAMINOPHEN\OXYCODONE HYDROCHLORIDE
  16. SENOKOT-S [Concomitant]
     Active Substance: DOCUSATE SODIUM\SENNOSIDES
  17. PROCARDIA [Concomitant]
     Active Substance: NIFEDIPINE

REACTIONS (4)
  - Asthenia [None]
  - Fatigue [None]
  - Nausea [None]
  - Hypophagia [None]

NARRATIVE: CASE EVENT DATE: 20191120
